FAERS Safety Report 7679322-7 (Version None)
Quarter: 2011Q3

REPORT INFORMATION
  Report Type: 
  Country: None (occurrence: None)
  Receive Date: 20110808
  Receipt Date: 20110729
  Transmission Date: 20111222
  Serious: Yes (Other)
  Sender: FDA-Public Use
  Company Number: 2011SP035811

PATIENT
  Age: 24 Year
  Sex: Male

DRUGS (12)
  1. PREDNISONE [Concomitant]
  2. CELLCEPT [Concomitant]
  3. NORVASC [Concomitant]
  4. PHOSLO [Concomitant]
  5. RENVELA [Concomitant]
  6. FOLIC ACID [Concomitant]
  7. VITAMIN B COMPLEX CAP [Concomitant]
  8. PROGRAF [Concomitant]
  9. MICARDIS [Concomitant]
  10. NASONEX [Suspect]
     Indication: RHINITIS
     Dosage: ;QD;NAS
     Route: 045
     Dates: start: 20100401, end: 20110101
  11. LABETALOL HCL [Concomitant]
  12. SENSIPAR [Concomitant]

REACTIONS (3)
  - VISION BLURRED [None]
  - CHROMATOPSIA [None]
  - SCOTOMA [None]
